FAERS Safety Report 17286549 (Version 3)
Quarter: 2020Q1

REPORT INFORMATION
  Report Type: Spontaneous
  Country: AU (occurrence: AU)
  Receive Date: 20200119
  Receipt Date: 20200225
  Transmission Date: 20200409
  Serious: Yes (Other)
  Sender: FDA-Public Use
  Company Number: NVSC2020AU009677

PATIENT

DRUGS (1)
  1. EXJADE [Suspect]
     Active Substance: DEFERASIROX
     Indication: IRON OVERLOAD
     Dosage: UNK
     Route: 048

REACTIONS (7)
  - Crohn^s disease [Unknown]
  - Abdominal distension [Unknown]
  - Nephrolithiasis [Unknown]
  - Renal impairment [Unknown]
  - Anal incontinence [Unknown]
  - Irritable bowel syndrome [Unknown]
  - Diarrhoea [Unknown]
